FAERS Safety Report 7446204-5 (Version None)
Quarter: 2011Q2

REPORT INFORMATION
  Report Type: 
  Country: None (occurrence: None)
  Receive Date: 20110429
  Receipt Date: 20110419
  Transmission Date: 20111010
  Serious: Yes (Hospitalization)
  Sender: FDA-Public Use
  Company Number: SE-JNJFOC-20110407726

PATIENT
  Sex: Female

DRUGS (3)
  1. HALDOL [Suspect]
     Indication: BIPOLAR DISORDER
     Route: 048
  2. LITHIONIT [Suspect]
     Indication: PRODUCT USED FOR UNKNOWN INDICATION
     Route: 048
  3. ERGENYL [Suspect]
     Indication: PRODUCT USED FOR UNKNOWN INDICATION
     Route: 048

REACTIONS (3)
  - MUSCULAR WEAKNESS [None]
  - FALL [None]
  - TREMOR [None]
